FAERS Safety Report 7177256-8 (Version None)
Quarter: 2010Q4

REPORT INFORMATION
  Report Type: 
  Country: None (occurrence: None)
  Receive Date: 20101220
  Receipt Date: 20101210
  Transmission Date: 20110411
  Serious: Yes (Death)
  Sender: FDA-Public Use
  Company Number: JP-ROCHE-748167

PATIENT
  Age: 70 Year
  Sex: Male

DRUGS (5)
  1. AVASTIN [Suspect]
     Indication: LARGE INTESTINE CARCINOMA
     Dosage: ACTION TAKEN: DISCONTINUED
     Route: 041
     Dates: start: 20101208, end: 20101208
  2. FLUOROURACIL [Suspect]
     Indication: LARGE INTESTINE CARCINOMA
     Route: 040
  3. FLUOROURACIL [Suspect]
     Dosage: ROUTE: INTRAVENOUS DRIP, ACTION TAKEN: DISCONTINUED
     Route: 040
  4. LEVOFOLINATE [Suspect]
     Indication: LARGE INTESTINE CARCINOMA
     Dosage: ACTION TAKEN: DISCONTINUED
     Route: 041
  5. ELPLAT [Suspect]
     Indication: LARGE INTESTINE CARCINOMA
     Dosage: ACTION TAKEN: DISCONTINUED
     Route: 041

REACTIONS (1)
  - CARDIO-RESPIRATORY ARREST [None]
